FAERS Safety Report 9324088 (Version 4)
Quarter: 2013Q3

REPORT INFORMATION
  Report Type: Report from Study
  Country: IN (occurrence: IN)
  Receive Date: 20130603
  Receipt Date: 20130902
  Transmission Date: 20140515
  Serious: Yes (Hospitalization, Other)
  Sender: FDA-Public Use
  Company Number: PHHY2013IN054562

PATIENT
  Age: 48 Year
  Sex: Male
  Weight: 79 kg

DRUGS (25)
  1. SIMULECT [Suspect]
     Indication: RENAL TRANSPLANT
     Dosage: 40 MG, (20 MG PLUS 20 MG)
  2. MYFORTIC [Suspect]
     Indication: RENAL TRANSPLANT
     Dosage: 360 MG, BID
  3. TACROLIMUS [Suspect]
     Indication: RENAL TRANSPLANT
     Dosage: 2 MG, BID
  4. TACROLIMUS [Suspect]
     Dosage: UNK UKN, UNK
  5. MYCOPHENOLATE MOFETIL [Concomitant]
  6. ANTITHYMOCYTE IMMUNOGLOBULIN [Concomitant]
     Dosage: UNK UKN, UNK
  7. ANTIBIOTICS [Concomitant]
     Dosage: UNK
     Route: 042
  8. OMNACORTIL [Concomitant]
     Dosage: 20 MG, QD
  9. METOLAR [Concomitant]
     Dosage: 100 MG, QD
  10. ARKAMINE [Concomitant]
     Dosage: 0.1 MG, (2 DF) TID
  11. DYTOR [Concomitant]
     Dosage: 100 MG, BID
  12. ZYTANIX [Concomitant]
     Dosage: 5 MG, QD
  13. SEPTRAN [Concomitant]
     Dosage: 1 DF, QD
  14. CANDID [Concomitant]
     Dosage: 20 DRP, TID
  15. VALCYTE [Concomitant]
     Dosage: 450 MG, TWICE A WEEK
  16. LANTUS [Concomitant]
     Dosage: 24 UNITS, QD
     Route: 058
  17. HUMALOG PLAIN [Concomitant]
     Dosage: 10 UNITS
  18. HOSIT [Concomitant]
     Dosage: 1 DF, QD
  19. PAN [Concomitant]
     Dosage: 40 MG, QD
  20. CALCIROL [Concomitant]
     Dosage: ONCE A MONTH
  21. OSTEOPHOS [Concomitant]
     Dosage: 70 MG, ONCE A WEEK
  22. SHELCAL [Concomitant]
     Dosage: 500 MG, QD
  23. CREMALAX [Concomitant]
     Indication: CONSTIPATION
     Dosage: 2 DF, PRN
  24. A-PLEX [Concomitant]
     Dosage: UNK
  25. SOLUMEDROL [Concomitant]
     Dosage: 500 MG, UNK

REACTIONS (12)
  - Complications of transplanted kidney [Unknown]
  - Renal tubular necrosis [Unknown]
  - Leukopenia [Unknown]
  - Weight increased [Unknown]
  - Kidney transplant rejection [Unknown]
  - Oliguria [Unknown]
  - Azotaemia [Unknown]
  - Fluid retention [Unknown]
  - Local swelling [Unknown]
  - Abdominal distension [Unknown]
  - Haemoglobin decreased [Unknown]
  - Platelet count decreased [Unknown]
